FAERS Safety Report 7775508-1 (Version None)
Quarter: 2011Q3

REPORT INFORMATION
  Report Type: 
  Country: None (occurrence: None)
  Receive Date: 20110923
  Receipt Date: 20101117
  Transmission Date: 20111222
  Serious: Yes (Hospitalization)
  Sender: FDA-Public Use
  Company Number: GB-ROCHE-744456

PATIENT

DRUGS (7)
  1. METHYLPREDNISOLONE [Suspect]
     Route: 065
  2. HYDROCORTISONE [Suspect]
     Route: 065
  3. MYCOPHENOLATE MOFETIL [Suspect]
     Route: 065
  4. TACROLIMUS [Suspect]
     Route: 065
  5. TACROLIMUS [Suspect]
     Dosage: DOSE DECREASED
     Route: 065
  6. DACLIZUMAB [Suspect]
     Route: 065
  7. MYCOPHENOLATE MOFETIL [Suspect]
     Dosage: MMF INCREASED
     Route: 065

REACTIONS (12)
  - PLEURAL EFFUSION [None]
  - RESPIRATORY ACIDOSIS [None]
  - RESPIRATORY DISTRESS [None]
  - VOMITING [None]
  - DIARRHOEA [None]
  - CONTUSION [None]
  - LOCALISED INTRAABDOMINAL FLUID COLLECTION [None]
  - LIVER FUNCTION TEST ABNORMAL [None]
  - WEIGHT DECREASED [None]
  - CONVULSION [None]
  - TRANSPLANT REJECTION [None]
  - BACK PAIN [None]
